FAERS Safety Report 7879293-4 (Version None)
Quarter: 2011Q4

REPORT INFORMATION
  Report Type: 
  Country: None (occurrence: None)
  Receive Date: 20111101
  Receipt Date: 20111021
  Transmission Date: 20120403
  Serious: Yes (Hospitalization)
  Sender: FDA-Public Use
  Company Number: US-BAYER-2011-050513

PATIENT
  Age: 44 Year
  Sex: Female
  Weight: 95.238 kg

DRUGS (7)
  1. VALTREX [Concomitant]
  2. PROTONIX [Concomitant]
  3. FOLIC ACID [Concomitant]
  4. VITAMIN B-12 [Concomitant]
  5. YASMIN [Suspect]
     Dosage: UNK
     Dates: start: 20070101, end: 20090101
  6. DROSPIRENONE AND ETHINYL ESTRADIOL [Suspect]
     Dosage: UNK
     Dates: start: 20070101, end: 20090101
  7. IRON [Concomitant]

REACTIONS (4)
  - PAIN [None]
  - CHOLECYSTITIS ACUTE [None]
  - GALLBLADDER DISORDER [None]
  - INJURY [None]
